FAERS Safety Report 9473534 (Version 2)
Quarter: 2014Q3

REPORT INFORMATION
  Report Type: Spontaneous
  Country: US (occurrence: US)
  Receive Date: 20130823
  Receipt Date: 20140827
  Transmission Date: 20150326
  Serious: No
  Sender: FDA-Public Use
  Company Number: US-GALDERMA-US13001378

PATIENT
  Age: 69 Year
  Sex: Female

DRUGS (9)
  1. METROGEL [Suspect]
     Active Substance: METRONIDAZOLE
     Indication: ROSACEA
     Dosage: 1%
     Route: 061
     Dates: start: 20130419, end: 20130422
  2. PREVACID [Concomitant]
     Active Substance: LANSOPRAZOLE
  3. DERMABLEND [Concomitant]
  4. FISH OIL [Concomitant]
     Active Substance: FISH OIL
  5. ALOE COLLAGEN CLEANSING CREAM [Concomitant]
  6. ALOE COLLAGEN MOISTURIZER [Concomitant]
  7. ALOE LIQUID MAKEUP [Concomitant]
  8. ASPIRIN. [Concomitant]
     Active Substance: ASPIRIN
  9. VITAMIN D [Concomitant]
     Active Substance: CHOLECALCIFEROL

REACTIONS (4)
  - Condition aggravated [Recovered/Resolved]
  - Acne [Recovered/Resolved]
  - Inappropriate schedule of drug administration [Recovered/Resolved]
  - Skin irritation [Recovered/Resolved]

NARRATIVE: CASE EVENT DATE: 20130419
